FAERS Safety Report 11696090 (Version 1)
Quarter: 2015Q4

REPORT INFORMATION
  Report Type: Spontaneous
  Country: US (occurrence: None)
  Receive Date: 20151103
  Receipt Date: 20151103
  Transmission Date: 20160304
  Serious: No
  Sender: FDA-Public Use
  Company Number: None

PATIENT
  Age: 59 Year
  Sex: Female
  Weight: 68.04 kg

DRUGS (15)
  1. ATORVASTATIN CALCIUM TABLETS GREENSTONE LLC PEAPACK [Suspect]
     Active Substance: ATORVASTATIN CALCIUM
     Indication: BLOOD CHOLESTEROL INCREASED
     Dosage: 1 PILL  ONCE DAILY  BY MOUTH
     Route: 048
     Dates: start: 20150929, end: 20151013
  2. ENALAPRIL [Concomitant]
     Active Substance: ENALAPRIL
  3. HYDROCOD/ACETA [Concomitant]
  4. CIMETIDINE [Concomitant]
     Active Substance: CIMETIDINE
  5. OMAXX 3 (OMEGA 3 FATTY ACIDS) [Concomitant]
  6. MULTIVITAMIN 50+ [Concomitant]
  7. VISION FORMULA 50+ [Concomitant]
  8. LEVOTHYROXIN [Concomitant]
     Active Substance: LEVOTHYROXINE
  9. ESTROVEN NIGHTTIME [Concomitant]
  10. HYDROCHLOROTHIAZIDE. [Concomitant]
     Active Substance: HYDROCHLOROTHIAZIDE
  11. COQ10 [Concomitant]
     Active Substance: UBIDECARENONE
  12. ASPRIN 81 MG [Concomitant]
  13. NASACORT ALLERGY SPRAY [Concomitant]
  14. SULFASALAZINE. [Concomitant]
     Active Substance: SULFASALAZINE
  15. PROBIOTIC 10 [Concomitant]

REACTIONS (13)
  - Urticaria [None]
  - Retching [None]
  - Dyspnoea [None]
  - Cough [None]
  - Peripheral swelling [None]
  - Arthralgia [None]
  - Balance disorder [None]
  - Pain of skin [None]
  - Chills [None]
  - Mental impairment [None]
  - Myalgia [None]
  - Decreased appetite [None]
  - Joint swelling [None]

NARRATIVE: CASE EVENT DATE: 20151012
